FAERS Safety Report 4974574-6 (Version None)
Quarter: 2006Q1

REPORT INFORMATION
  Report Type: 
  Country: None (occurrence: None)
  Receive Date: 20060215
  Receipt Date: 20050826
  Transmission Date: 20060701
  Serious: Yes (Other)
  Sender: FDA-Public Use
  Company Number: PROG00205002750

PATIENT
  Sex: Female

DRUGS (7)
  1. PROMETRIUM [Suspect]
     Indication: HORMONE REPLACEMENT THERAPY
     Dosage: DAILY ORAL
     Route: 048
  2. ESTROGEN (ESTROGEN) [Suspect]
     Indication: HORMONE REPLACEMENT THERAPY
  3. CENESTIN [Suspect]
     Indication: HORMONE REPLACEMENT THERAPY
  4. ESTRING [Suspect]
     Indication: HORMONE REPLACEMENT THERAPY
  5. VAGIFEM [Suspect]
     Indication: HORMONE REPLACEMENT THERAPY
  6. MENEST [Suspect]
     Indication: HORMONE REPLACEMENT THERAPY
  7. FEMRING (ESTRADIOL) [Suspect]
     Indication: HORMONE REPLACEMENT THERAPY

REACTIONS (1)
  - BREAST CANCER [None]
